FAERS Safety Report 9204220 (Version 1)
Quarter: 2013Q2

REPORT INFORMATION
  Report Type: Spontaneous
  Country: US (occurrence: None)
  Receive Date: 20130401
  Receipt Date: 20130401
  Transmission Date: 20140414
  Serious: Yes (Life-Threatening, Hospitalization)
  Sender: FDA-Public Use
  Company Number: None

PATIENT
  Age: 28 Year
  Sex: Female
  Weight: 54.43 kg

DRUGS (1)
  1. MIRENA IUD [Suspect]

REACTIONS (4)
  - Device dislocation [None]
  - Pain [None]
  - Inflammation [None]
  - Dyspareunia [None]
